FAERS Safety Report 21025311 (Version 1)
Quarter: 2022Q2

REPORT INFORMATION
  Report Type: Spontaneous
  Country: GB (occurrence: GB)
  Receive Date: 20220630
  Receipt Date: 20220630
  Transmission Date: 20220721
  Serious: Yes (Other)
  Sender: FDA-Public Use
  Company Number: GB-BRISTOL-MYERS SQUIBB COMPANY-2022-062523

PATIENT
  Age: 56 Year
  Sex: Female
  Weight: 40.3 kg

DRUGS (4)
  1. ELIQUIS [Suspect]
     Active Substance: APIXABAN
     Indication: Microangiopathy
     Route: 048
     Dates: start: 20220613
  2. IVABRADINE [Concomitant]
     Active Substance: IVABRADINE
     Indication: Tachycardia
     Route: 065
  3. GAVISCON [MAGNESIUM ALGINATE;SODIUM ALGINATE] [Concomitant]
     Indication: Gastrooesophageal reflux disease
     Route: 065
  4. LANSOPRAZOLE [Concomitant]
     Active Substance: LANSOPRAZOLE
     Indication: Product used for unknown indication
     Route: 065

REACTIONS (7)
  - Nausea [Unknown]
  - Dyspnoea [Unknown]
  - Abdominal distension [Unknown]
  - Faecaloma [Unknown]
  - Thirst [Unknown]
  - Pallor [Unknown]
  - Fatigue [Unknown]
